FAERS Safety Report 6643198-7 (Version None)
Quarter: 2010Q1

REPORT INFORMATION
  Report Type: 
  Country: None (occurrence: None)
  Receive Date: 20100319
  Receipt Date: 20100315
  Transmission Date: 20100710
  Serious: Yes (Death)
  Sender: FDA-Public Use
  Company Number: PHEH2010US03164

PATIENT
  Age: 75 Year
  Sex: Male

DRUGS (1)
  1. TOBI [Suspect]
     Indication: CYSTIC FIBROSIS
     Dosage: 1 VIAL VIA PNT BID ALTERNATING 2WKS ON AND 2 WKS OFF
     Dates: start: 20091028, end: 20100201

REACTIONS (1)
  - DEATH [None]
